FAERS Safety Report 5027645-2 (Version None)
Quarter: 2006Q2

REPORT INFORMATION
  Report Type: 
  Country: None (occurrence: None)
  Receive Date: 20060616
  Receipt Date: 20050615
  Transmission Date: 20061013
  Serious: Yes (Hospitalization)
  Sender: FDA-Public Use
  Company Number: FR-ABBOTT-05P-056-0303400-00

PATIENT
  Sex: Female

DRUGS (1)
  1. HUMIRA [Suspect]
     Indication: RHEUMATOID ARTHRITIS
     Route: 058
     Dates: start: 20040324, end: 20041124

REACTIONS (7)
  - BONE DENSITY DECREASED [None]
  - CUTANEOUS VASCULITIS [None]
  - CYTOMEGALOVIRUS INFECTION [None]
  - LEUKOCYTOCLASTIC VASCULITIS [None]
  - LYMPHOPENIA [None]
  - SJOGREN'S SYNDROME [None]
  - SKIN ULCER [None]
